FAERS Safety Report 10812009 (Version 1)
Quarter: 2015Q1

REPORT INFORMATION
  Report Type: Report from Study
  Country: CA (occurrence: CA)
  Receive Date: 20150217
  Receipt Date: 20150217
  Transmission Date: 20150721
  Serious: Yes (Hospitalization)
  Sender: FDA-Public Use
  Company Number: CA-ABBVIE-15K-028-1346201-00

PATIENT
  Sex: Female

DRUGS (1)
  1. HUMIRA [Suspect]
     Active Substance: ADALIMUMAB
     Indication: RHEUMATOID ARTHRITIS
     Route: 058
     Dates: start: 20120105, end: 20141223

REACTIONS (8)
  - Herpes zoster [Unknown]
  - Stomatitis [Unknown]
  - Nasal ulcer [Unknown]
  - Balance disorder [Unknown]
  - Contusion [Unknown]
  - Sepsis [Unknown]
  - Blister [Unknown]
  - Fall [Unknown]

NARRATIVE: CASE EVENT DATE: 2014
